FAERS Safety Report 14771620 (Version 1)
Quarter: 2018Q2

REPORT INFORMATION
  Report Type: Spontaneous
  Country: US (occurrence: US)
  Receive Date: 20180417
  Receipt Date: 20180417
  Transmission Date: 20180711
  Serious: No
  Sender: FDA-Public Use
  Company Number: US-ALLERGAN-1724556US

PATIENT
  Sex: Female
  Weight: 58.5 kg

DRUGS (2)
  1. LATISSE [Suspect]
     Active Substance: BIMATOPROST
     Dosage: 2 GTT, ONCE AT NIGHT
     Route: 061
     Dates: start: 201703, end: 201705
  2. LATISSE [Suspect]
     Active Substance: BIMATOPROST
     Indication: GROWTH OF EYELASHES
     Dosage: 2 GTT, ONCE AT NIGHT
     Route: 061

REACTIONS (3)
  - Madarosis [Not Recovered/Not Resolved]
  - Eyelid disorder [Recovering/Resolving]
  - Drug ineffective [Unknown]
